FAERS Safety Report 9360838 (Version 1)
Quarter: 2013Q2

REPORT INFORMATION
  Report Type: Spontaneous
  Country: US (occurrence: US)
  Receive Date: 20130621
  Receipt Date: 20130621
  Transmission Date: 20140414
  Serious: Yes (Other)
  Sender: FDA-Public Use
  Company Number: US-ROCHE-1237766

PATIENT
  Age: 69 Year
  Sex: Male

DRUGS (3)
  1. AVASTIN [Suspect]
     Indication: COLORECTAL CANCER METASTATIC
     Route: 065
  2. XELODA [Suspect]
     Indication: COLORECTAL CANCER METASTATIC
     Route: 065
  3. OXALIPLATIN [Concomitant]
     Indication: COLORECTAL CANCER METASTATIC

REACTIONS (1)
  - Squamous cell carcinoma of head and neck [Not Recovered/Not Resolved]
